FAERS Safety Report 5316708-X (Version None)
Quarter: 2007Q2

REPORT INFORMATION
  Report Type: 
  Country: None (occurrence: None)
  Receive Date: 20070501
  Receipt Date: 20070501
  Transmission Date: 20071010
  Serious: Yes (Hospitalization)
  Sender: FDA-Public Use
  Company Number: None

PATIENT
  Sex: Female
  Weight: 45.45 kg

DRUGS (2)
  1. TAXOL [Suspect]
     Dosage: 242 MG
  2. CARBOPLATIN [Suspect]
     Dosage: 570 MG

REACTIONS (1)
  - SUPRAVENTRICULAR TACHYCARDIA [None]
